FAERS Safety Report 9483711 (Version 2)
Quarter: 2013Q3

REPORT INFORMATION
  Report Type: Spontaneous
  Country: CA (occurrence: CA)
  Receive Date: 20130828
  Receipt Date: 20130828
  Transmission Date: 20140515
  Serious: Yes (Other)
  Sender: FDA-Public Use
  Company Number: CA-AMGEN-KDL291712

PATIENT
  Age: 51 Year
  Sex: Female

DRUGS (3)
  1. ENBREL [Suspect]
     Indication: RHEUMATOID ARTHRITIS
     Dosage: UNK UNK, QWK
     Route: 065
     Dates: start: 20080611
  2. CALCIUM WITH VITAMIN D [Concomitant]
     Dosage: UNK UNK, UNK
  3. PANADEINE CO [Concomitant]

REACTIONS (10)
  - Cardiac disorder [Unknown]
  - Arthralgia [Not Recovered/Not Resolved]
  - Pruritus [Unknown]
  - Joint swelling [Unknown]
  - Arthropod bite [Not Recovered/Not Resolved]
  - Erythema [Not Recovered/Not Resolved]
  - Pruritus [Recovering/Resolving]
  - Swelling [Not Recovered/Not Resolved]
  - Heart rate abnormal [Unknown]
  - Back pain [Not Recovered/Not Resolved]
